FAERS Safety Report 15715360 (Version 2)
Quarter: 2019Q1

REPORT INFORMATION
  Report Type: Spontaneous
  Country: US (occurrence: US)
  Receive Date: 20181212
  Receipt Date: 20190110
  Transmission Date: 20190417
  Serious: Yes (Other)
  Sender: FDA-Public Use
  Company Number: US-SUNOVION-2018SUN004841

PATIENT
  Age: 96 Year
  Weight: 59.86 kg

DRUGS (14)
  1. MEVACOR [Concomitant]
     Active Substance: LOVASTATIN
     Dosage: 40 MG, QD WITH DINNER
     Route: 048
  2. LEXAPRO [Concomitant]
     Active Substance: ESCITALOPRAM OXALATE
     Dosage: 5 MG, EVERY MORNING AT 07 00
     Route: 048
  3. LASIX [Concomitant]
     Active Substance: FUROSEMIDE
     Dosage: 20 MG TWO TABLETS
     Route: 048
  4. NEURONTIN [Concomitant]
     Active Substance: GABAPENTIN
     Dosage: 300 MG, TID
     Route: 048
  5. DUONEB [Concomitant]
     Active Substance: ALBUTEROL SULFATE\IPRATROPIUM BROMIDE
     Dosage: 0.5 MG / 3 MG (2.5 MG BASE)/ 3 ML NEBULIZER SOLUTION EVERY 12 HOURS STANDING AND EVERY 6 HOURS AS NE
  6. PULMICORT TURBUHALER [Suspect]
     Active Substance: BUDESONIDE
     Dosage: 0.5 ML/ 2ML NEBULIZER SOLUTION 2 ML BY NEBULIZATION TWICE
     Route: 055
  7. CYANOCOBALAMIN. [Concomitant]
     Active Substance: CYANOCOBALAMIN
     Dosage: 1000 ?G/ 1 ML, 1 ML EVERY SIX WEEKS
     Route: 030
  8. VANCOMYCIN [Concomitant]
     Active Substance: VANCOMYCIN
     Dosage: 50 MG/  ML, 125 MG DAILY
     Route: 048
  9. COZAAR [Concomitant]
     Active Substance: LOSARTAN POTASSIUM
     Dosage: 25 MG, 0.5 TABLETS (12.5 MG TOTAL)
     Route: 048
  10. DITROPAN [Concomitant]
     Active Substance: OXYBUTYNIN CHLORIDE
     Dosage: 5 MG, QD
     Route: 048
  11. ZINC OXIDE. [Concomitant]
     Active Substance: ZINC OXIDE
     Dosage: 40 %, TWICE DAILY AND AS NECESSARY
     Route: 061
  12. LONHALA MAGNAIR [Suspect]
     Active Substance: GLYCOPYRROLATE
     Route: 055
  13. MELATONIN [Concomitant]
     Active Substance: MELATONIN
     Dosage: 2 TABLETS 3 MG AS NECESSARY
     Route: 048
  14. FLORASTOR [Concomitant]
     Active Substance: SACCHAROMYCES CEREVISIAE
     Dosage: 250 MG, TID
     Route: 048

REACTIONS (2)
  - Dyspnoea [Recovered/Resolved]
  - Choking [Recovered/Resolved]

NARRATIVE: CASE EVENT DATE: 20181124
